FAERS Safety Report 16186798 (Version 2)
Quarter: 2019Q2

REPORT INFORMATION
  Report Type: Spontaneous
  Country: DE (occurrence: DE)
  Receive Date: 20190411
  Receipt Date: 20190415
  Transmission Date: 20190711
  Serious: Yes (Congenital Anomaly, Other)
  Sender: FDA-Public Use
  Company Number: PHHY2019DE079506

PATIENT
  Age: 1 Day
  Sex: Male
  Weight: 3.03 kg

DRUGS (3)
  1. AMLODIPINE [Concomitant]
     Active Substance: AMLODIPINE BESYLATE
     Indication: FOETAL EXPOSURE DURING PREGNANCY
     Dosage: MATERNAL DOSE: 5 MG, QD
     Route: 064
     Dates: start: 20180819, end: 20180906
  2. EXFORGE [Suspect]
     Active Substance: AMLODIPINE BESYLATE\VALSARTAN
     Indication: FOETAL EXPOSURE DURING PREGNANCY
     Dosage: MATERNAL DOSE: 80 MG, QD
     Route: 064
  3. METHYLDOPA. [Concomitant]
     Active Substance: METHYLDOPA
     Indication: FOETAL EXPOSURE DURING PREGNANCY
     Dosage: MATERNAL DOSE: 750 MG, QD
     Route: 064
     Dates: start: 20180819, end: 20180906

REACTIONS (3)
  - Foetal exposure during pregnancy [Unknown]
  - Foot deformity [Recovering/Resolving]
  - Cryptorchism [Not Recovered/Not Resolved]

NARRATIVE: CASE EVENT DATE: 20180906
